FAERS Safety Report 7919888-2 (Version None)
Quarter: 2011Q4

REPORT INFORMATION
  Report Type: 
  Country: None (occurrence: None)
  Receive Date: 20111117
  Receipt Date: 20110812
  Transmission Date: 20120403
  Serious: No
  Sender: FDA-Public Use
  Company Number: US-BAYER-2011-075764

PATIENT
  Sex: Male

DRUGS (2)
  1. ALEVE (CAPLET) [Suspect]
     Indication: BACK PAIN
     Dosage: 3 DF, BID
     Dates: start: 20110201
  2. CORTICOSTEROIDS [Concomitant]

REACTIONS (1)
  - NO ADVERSE EVENT [None]
